FAERS Safety Report 17568685 (Version 1)
Quarter: 2020Q1

REPORT INFORMATION
  Report Type: Spontaneous
  Country: IT (occurrence: IT)
  Receive Date: 20200321
  Receipt Date: 20200321
  Transmission Date: 20200409
  Serious: Yes (Hospitalization)
  Sender: FDA-Public Use
  Company Number: IT-JNJFOC-20200314910

PATIENT
  Age: 31 Year
  Sex: Male

DRUGS (3)
  1. IBUPROFEN. [Suspect]
     Active Substance: IBUPROFEN
     Indication: TOOTHACHE
     Dosage: IN TOTAL,?THERAPEUTIC ERROR
     Route: 048
     Dates: start: 20200216, end: 20200216
  2. AMOXICILLIN W/CLAVULANIC ACID [Suspect]
     Active Substance: AMOXICILLIN\CLAVULANIC ACID
     Indication: TOOTHACHE
     Dosage: IN TOTAL?THERAPEUTIC ERROR
     Route: 048
     Dates: start: 20200216, end: 20200216
  3. TRAMADOL HYDROCHLORIDE. [Suspect]
     Active Substance: TRAMADOL HYDROCHLORIDE
     Indication: TOOTHACHE
     Dosage: IN TOTAL,?THERAPEUTIC ERROR
     Route: 048
     Dates: start: 20200216, end: 20200216

REACTIONS (3)
  - Miosis [Unknown]
  - Vomiting [Unknown]
  - Medication error [Unknown]

NARRATIVE: CASE EVENT DATE: 20200216
